FAERS Safety Report 23651419 (Version 2)
Quarter: 2024Q1

REPORT INFORMATION
  Report Type: Report from Study
  Country: EG (occurrence: EG)
  Receive Date: 20240320
  Receipt Date: 20240323
  Transmission Date: 20240410
  Serious: Yes (Other)
  Sender: FDA-Public Use
  Company Number: EG-002147023-NVSC2024EG057794

PATIENT
  Age: 40 Year
  Sex: Female

DRUGS (4)
  1. FEMARA [Suspect]
     Active Substance: LETROZOLE
     Indication: Breast cancer
     Dosage: 1 TABLET (FOR 6 MONTHS AS PER THE UPLOADED PRESCRIPTION) (2 MONTHS BEFORE METASTASIS AS PER PATIENT?
     Route: 048
     Dates: start: 202004
  2. ZOMETA [Suspect]
     Active Substance: ZOLEDRONIC ACID
     Indication: Osteoporosis
     Dosage: 1 DOSAGE FORM (ONE IV INFUSION EVERY 6 MONTHS)
     Route: 042
     Dates: start: 202301
  3. ZOMETA [Suspect]
     Active Substance: ZOLEDRONIC ACID
     Indication: Blood calcium decreased
  4. ZOMETA [Suspect]
     Active Substance: ZOLEDRONIC ACID
     Indication: Pain in extremity

REACTIONS (7)
  - Osteoporosis [Recovering/Resolving]
  - Blood calcium decreased [Recovering/Resolving]
  - Bone pain [Recovering/Resolving]
  - Pain in extremity [Recovering/Resolving]
  - Metastases to lung [Recovered/Resolved]
  - Drug ineffective [Unknown]
  - Inappropriate schedule of product administration [Unknown]

NARRATIVE: CASE EVENT DATE: 20231001
